FAERS Safety Report 5700336-8 (Version None)
Quarter: 2008Q2

REPORT INFORMATION
  Report Type: 
  Country: None (occurrence: None)
  Receive Date: 20080408
  Receipt Date: 20080408
  Transmission Date: 20081010
  Serious: Yes (Other)
  Sender: FDA-Public Use
  Company Number: None

PATIENT
  Age: 59 Year
  Sex: Male
  Weight: 83.9154 kg

DRUGS (2)
  1. PROVENTIL [Suspect]
     Indication: ASTHMA
     Dosage: AS NEEDED PO
     Route: 048
     Dates: start: 20080101, end: 20080408
  2. PROAIR HFA [Suspect]
     Indication: ASTHMA
     Dosage: AS NEEDED PO
     Route: 048
     Dates: start: 20080201, end: 20080408

REACTIONS (3)
  - DEVICE FAILURE [None]
  - DRUG INEFFECTIVE [None]
  - PHARMACEUTICAL PRODUCT COMPLAINT [None]
